FAERS Safety Report 4665821-9 (Version None)
Quarter: 2005Q2

REPORT INFORMATION
  Report Type: 
  Country: None (occurrence: None)
  Receive Date: 20050519
  Receipt Date: 20050225
  Transmission Date: 20051028
  Serious: No
  Sender: FDA-Public Use
  Company Number: US-GLAXOSMITHKLINE-A0547385A

PATIENT
  Age: 76 Year
  Sex: Male

DRUGS (3)
  1. AVODART [Suspect]
     Indication: BENIGN PROSTATIC HYPERPLASIA
     Dosage: .5MG PER DAY
     Route: 048
     Dates: start: 20050125
  2. ALTACE [Concomitant]
  3. ASPIRIN [Concomitant]

REACTIONS (6)
  - DEFAECATION URGENCY [None]
  - DIARRHOEA [None]
  - DYSURIA [None]
  - MICTURITION DISORDER [None]
  - PHARMACEUTICAL PRODUCT COMPLAINT [None]
  - POLLAKIURIA [None]
